FAERS Safety Report 17194209 (Version 1)
Quarter: 2019Q4

REPORT INFORMATION
  Report Type: Other
  Country: GB (occurrence: GB)
  Receive Date: 20191224
  Receipt Date: 20191224
  Transmission Date: 20200122
  Serious: Yes (Death, Hospitalization, Other)
  Sender: FDA-Public Use
  Company Number: GB-LUPIN PHARMACEUTICALS INC.-2019-08516

PATIENT
  Age: 35 Year
  Sex: Female

DRUGS (2)
  1. EPILIM [Suspect]
     Active Substance: VALPROATE SODIUM
     Indication: EPILEPSY
     Dosage: 1400 MILLIGRAM, QD
     Route: 048
     Dates: start: 2013, end: 201812
  2. LEVETIRACETAM. [Suspect]
     Active Substance: LEVETIRACETAM
     Indication: EPILEPSY
     Dosage: UNK
     Route: 065
     Dates: start: 201812

REACTIONS (2)
  - Sudden unexplained death in epilepsy [Fatal]
  - Epilepsy [Fatal]

NARRATIVE: CASE EVENT DATE: 20190402
